FAERS Safety Report 9710127 (Version 1)
Quarter: 2013Q4

REPORT INFORMATION
  Report Type: Spontaneous
  Country: IT (occurrence: IT)
  Receive Date: 20131126
  Receipt Date: 20131126
  Transmission Date: 20140711
  Serious: Yes (Death)
  Sender: FDA-Public Use
  Company Number: PHHY2013IT133948

PATIENT
  Age: 70 Year
  Sex: Female

DRUGS (4)
  1. CLOZAPINE [Suspect]
     Indication: SCHIZOPHRENIA, PARANOID TYPE
  2. VALPROIC ACID [Suspect]
     Indication: SCHIZOPHRENIA, PARANOID TYPE
  3. OLANZAPINE [Suspect]
     Indication: SCHIZOPHRENIA, PARANOID TYPE
  4. HALOPERIDOL [Suspect]

REACTIONS (5)
  - Asphyxia [Fatal]
  - Obstruction [Fatal]
  - Respiratory failure [Fatal]
  - Toxicologic test abnormal [Unknown]
  - Dry mouth [None]
